FAERS Safety Report 9594113 (Version 1)
Quarter: 2013Q3

REPORT INFORMATION
  Report Type: Spontaneous
  Country: US (occurrence: None)
  Receive Date: 20130930
  Receipt Date: 20130930
  Transmission Date: 20140515
  Serious: No
  Sender: FDA-Public Use
  Company Number: 1000048138

PATIENT
  Age: 86 Year
  Sex: Female

DRUGS (5)
  1. LINZESS [Suspect]
     Indication: IRRITABLE BOWEL SYNDROME
     Dosage: 145 MCG, 1 IN 1 D
     Route: 048
     Dates: start: 20130722, end: 201308
  2. LINZESS [Suspect]
     Indication: IRRITABLE BOWEL SYNDROME
     Dosage: 145 MCG, 1 IN 1 D
     Route: 048
     Dates: start: 201308
  3. LAXATIVE NOS [Concomitant]
  4. LACTAID [Concomitant]
  5. PROBIOTICS [Concomitant]

REACTIONS (2)
  - Abdominal pain [None]
  - Frequent bowel movements [None]
